FAERS Safety Report 9668735 (Version 1)
Quarter: 2013Q4

REPORT INFORMATION
  Report Type: Spontaneous
  Country: US (occurrence: US)
  Receive Date: 20131105
  Receipt Date: 20131105
  Transmission Date: 20140711
  Serious: Yes (Hospitalization)
  Sender: FDA-Public Use
  Company Number: US-GLENMARK GENERICS INC.-2013GMK007376

PATIENT
  Age: 31 Year
  Sex: Male

DRUGS (2)
  1. METFORMIN [Suspect]
     Indication: PRODUCT USED FOR UNKNOWN INDICATION
     Dosage: 50 G, UNK
     Route: 048
  2. ATRIPLA [Concomitant]
     Indication: HIV INFECTION
     Dosage: UNK

REACTIONS (6)
  - Intentional overdose [Recovered/Resolved]
  - Suicide attempt [Unknown]
  - Hypoglycaemia [Recovered/Resolved]
  - Lactic acidosis [Recovered/Resolved]
  - Tachypnoea [Recovered/Resolved]
  - Somnolence [Recovered/Resolved]
